FAERS Safety Report 25304599 (Version 1)
Quarter: 2025Q2

REPORT INFORMATION
  Report Type: Spontaneous
  Country: US (occurrence: None)
  Receive Date: 20250512
  Receipt Date: 20250512
  Transmission Date: 20250717
  Serious: Yes (Other)
  Sender: FDA-CTU
  Company Number: None

PATIENT
  Age: 60 Year
  Sex: Female
  Weight: 50.4 kg

DRUGS (9)
  1. NUCALA [Suspect]
     Active Substance: MEPOLIZUMAB
     Indication: Nasal polyps
     Route: 058
     Dates: start: 20250201, end: 20250501
  2. Albuterol, [Concomitant]
  3. Flovent, [Concomitant]
  4. Tretinoin, [Concomitant]
  5. PREMARIN [Concomitant]
     Active Substance: ESTROGENS, CONJUGATED
  6. Claritin, [Concomitant]
  7. Zyrtec, [Concomitant]
  8. Benadryl, [Concomitant]
  9. FLUTICASONE [Concomitant]
     Active Substance: FLUTICASONE

REACTIONS (10)
  - Angioedema [None]
  - Confusional state [None]
  - Brain fog [None]
  - Bone pain [None]
  - Skin lesion [None]
  - Snoring [None]
  - Asthma [None]
  - Amnesia [None]
  - Facial pain [None]
  - Paranasal sinus discomfort [None]

NARRATIVE: CASE EVENT DATE: 20250201
